FAERS Safety Report 4280538-0 (Version None)
Quarter: 2004Q1

REPORT INFORMATION
  Report Type: 
  Country: None (occurrence: None)
  Receive Date: 20040127
  Receipt Date: 20040121
  Transmission Date: 20041129
  Serious: Yes (Hospitalization)
  Sender: FDA-Public Use
  Company Number: MK200401-0191-1

PATIENT
  Age: 62 Year
  Sex: Female

DRUGS (1)
  1. NORTRIPTYLINE HCL [Suspect]

REACTIONS (10)
  - AV DISSOCIATION [None]
  - BLOOD LACTIC ACID INCREASED [None]
  - COMA [None]
  - ELECTROCARDIOGRAM QRS COMPLEX PROLONGED [None]
  - ELECTROCARDIOGRAM QT PROLONGED [None]
  - GRAND MAL CONVULSION [None]
  - HEART RATE IRREGULAR [None]
  - OVERDOSE [None]
  - RESPIRATORY RATE INCREASED [None]
  - VENTRICULAR TACHYCARDIA [None]
